FAERS Safety Report 6735922-X (Version None)
Quarter: 2010Q2

REPORT INFORMATION
  Report Type: 
  Country: None (occurrence: None)
  Receive Date: 20100521
  Receipt Date: 20100517
  Transmission Date: 20101027
  Serious: Yes (Hospitalization)
  Sender: FDA-Public Use
  Company Number: B0626467B

PATIENT
  Sex: Female
  Weight: 60 kg

DRUGS (4)
  1. LAPATINIB [Suspect]
     Indication: BREAST CANCER
     Dosage: 1000MG PER DAY
     Route: 048
     Dates: start: 20090929, end: 20100416
  2. TRASTUZUMAB [Suspect]
     Indication: BREAST CANCER
     Route: 042
     Dates: start: 20090929
  3. PACLITAXEL [Suspect]
     Indication: BREAST CANCER
     Dosage: 80MGM2 WEEKLY
     Route: 042
     Dates: start: 20090929
  4. IMODIUM [Concomitant]
     Dosage: 2MG AS REQUIRED
     Route: 048
     Dates: start: 20091001

REACTIONS (4)
  - CLOSTRIDIUM DIFFICILE COLITIS [None]
  - DIARRHOEA [None]
  - ENTEROCOLITIS INFECTIOUS [None]
  - PYREXIA [None]
